FAERS Safety Report 8104002-3 (Version None)
Quarter: 2012Q1

REPORT INFORMATION
  Report Type: 
  Country: None (occurrence: None)
  Receive Date: 20120201
  Receipt Date: 20120125
  Transmission Date: 20120608
  Serious: Yes (Other)
  Sender: FDA-Public Use
  Company Number: JP-BAYER-2012-008063

PATIENT
  Age: 31 Year
  Sex: Female

DRUGS (2)
  1. ANTIHEMOPHILIC FACTOR VIII (RECOMBINANT), SUCROSE FORMULATED [Suspect]
     Indication: FACTOR VIII DEFICIENCY
  2. ANTIHEMOPHILIC FACTOR VIII (RECOMBINANT), SUCROSE FORMULATED [Suspect]
     Indication: FACTOR V DEFICIENCY

REACTIONS (3)
  - MATERNAL EXPOSURE DURING PREGNANCY [None]
  - CAESAREAN SECTION [None]
  - NO ADVERSE EVENT [None]
